FAERS Safety Report 4654265-1 (Version None)
Quarter: 2005Q2

REPORT INFORMATION
  Report Type: 
  Country: None (occurrence: None)
  Receive Date: 20050404
  Receipt Date: 20041210
  Transmission Date: 20051028
  Serious: No
  Sender: FDA-Public Use
  Company Number: USA041285864

PATIENT
  Age: 23 Year
  Sex: Female
  Weight: 70 kg

DRUGS (3)
  1. CYMBALTA [Suspect]
     Indication: DEPRESSION
     Dosage: 30 MG/ 2 DAY
     Dates: start: 20041001
  2. ASTHMA MEDICATIONS [Concomitant]
  3. CONTRACEPTIVE PILL (ORAL CONTRACEPTIVE NOS) [Concomitant]

REACTIONS (4)
  - ANORGASMIA [None]
  - HYPERHIDROSIS [None]
  - MUSCLE TWITCHING [None]
  - NIGHT SWEATS [None]
